FAERS Safety Report 4313080-9 (Version None)
Quarter: 2004Q1

REPORT INFORMATION
  Report Type: 
  Country: None (occurrence: None)
  Receive Date: 20040304
  Receipt Date: 20040226
  Transmission Date: 20041129
  Serious: Yes (Hospitalization, Other)
  Sender: FDA-Public Use
  Company Number: 2004201369US

PATIENT
  Age: 65 Year
  Sex: Male
  Weight: 81.6 kg

DRUGS (1)
  1. BEXTRA [Suspect]
     Indication: ARTHRALGIA
     Dates: start: 20040215

REACTIONS (1)
  - LOSS OF CONSCIOUSNESS [None]
